FAERS Safety Report 13898072 (Version 3)
Quarter: 2017Q4

REPORT INFORMATION
  Report Type: Spontaneous
  Country: US (occurrence: US)
  Receive Date: 20170823
  Receipt Date: 20171201
  Transmission Date: 20180320
  Serious: Yes (Other)
  Sender: FDA-Public Use
  Company Number: US-BAYER-2017-156034

PATIENT
  Age: 54 Year
  Sex: Male

DRUGS (17)
  1. METHADONE [Concomitant]
     Active Substance: METHADONE HYDROCHLORIDE
     Indication: PAIN
     Dosage: 30 MG, TID
     Dates: start: 1990
  2. LEVAQUIN [Suspect]
     Active Substance: LEVOFLOXACIN
     Indication: CELLULITIS
     Dosage: 750 MG, UNK
     Dates: start: 20080426, end: 20080506
  3. LEVAQUIN [Suspect]
     Active Substance: LEVOFLOXACIN
     Indication: CELLULITIS
     Dosage: 500MG-750MG
     Dates: start: 20080718, end: 20080728
  4. AVELOX [Suspect]
     Active Substance: MOXIFLOXACIN HYDROCHLORIDE
     Indication: TUBERCULOSIS
     Dosage: 400 MG, UNK
     Dates: start: 20100917, end: 20101001
  5. VALSARTAN. [Concomitant]
     Active Substance: VALSARTAN
     Indication: BLOOD PRESSURE ABNORMAL
     Dosage: UNK
     Dates: start: 2010, end: 2011
  6. AVELOX [Suspect]
     Active Substance: MOXIFLOXACIN HYDROCHLORIDE
     Indication: TUBERCULOSIS
     Dosage: 400 MG, UNK
     Dates: start: 20080828, end: 20080907
  7. LEVAQUIN [Suspect]
     Active Substance: LEVOFLOXACIN
     Indication: CELLULITIS
     Dosage: 750 MG, UNK
     Dates: start: 20080615
  8. OXYCODONE [Concomitant]
     Active Substance: OXYCODONE
     Indication: PAIN
     Dosage: 30 MG, BID
  9. AVELOX [Suspect]
     Active Substance: MOXIFLOXACIN HYDROCHLORIDE
     Indication: TUBERCULOSIS
     Dosage: 400 MG, UNK
     Dates: start: 20090925, end: 20091009
  10. SYNTHROID [Concomitant]
     Active Substance: LEVOTHYROXINE SODIUM
     Indication: THYROID DISORDER
     Dosage: 200 MG, QD
     Dates: start: 2002
  11. LEVAQUIN [Suspect]
     Active Substance: LEVOFLOXACIN
     Indication: CELLULITIS
     Dosage: 750 MG, UNK
     Dates: start: 20080418
  12. LEVAQUIN [Suspect]
     Active Substance: LEVOFLOXACIN
     Indication: CELLULITIS
     Dosage: 500 MG, UNK
     Dates: start: 20091106, end: 20091116
  13. FENTANYL. [Concomitant]
     Active Substance: FENTANYL
     Dosage: 100 MICROGRAMS/2PATCHES EVERY 3 DAYS
     Dates: start: 2001
  14. AVELOX [Suspect]
     Active Substance: MOXIFLOXACIN HYDROCHLORIDE
     Indication: TUBERCULOSIS
     Dosage: 400 MG, UNK
     Dates: start: 20071026, end: 20071102
  15. AVELOX [Suspect]
     Active Substance: MOXIFLOXACIN HYDROCHLORIDE
     Indication: TUBERCULOSIS
     Dosage: 400 MG, UNK
     Dates: start: 20100830
  16. LEVAQUIN [Suspect]
     Active Substance: LEVOFLOXACIN
     Indication: CELLULITIS
     Dosage: 500MG-750MG
     Dates: start: 20070916, end: 20070926
  17. LEVAQUIN [Suspect]
     Active Substance: LEVOFLOXACIN
     Indication: CHEST PAIN
     Dosage: 500 MG, UNK
     Dates: start: 20080108, end: 20080114

REACTIONS (4)
  - Neuropathy peripheral [Not Recovered/Not Resolved]
  - Polyneuropathy [None]
  - Anxiety [None]
  - Depression [None]

NARRATIVE: CASE EVENT DATE: 2007
